FAERS Safety Report 4355543-6 (Version None)
Quarter: 2004Q2

REPORT INFORMATION
  Report Type: 
  Country: None (occurrence: None)
  Receive Date: 20040505
  Receipt Date: 20040129
  Transmission Date: 20050107
  Serious: Yes (Other)
  Sender: FDA-Public Use
  Company Number: 10049026-SX02JD9-1

PATIENT
  Age: 20 Year
  Sex: Female

DRUGS (2)
  1. ARB2323 LACTATED RINGERS INJECTION (HARTMANNS SOLUTION) [Suspect]
     Indication: HAEMORRHOIDAL HAEMORRHAGE
     Dosage: 500ML, CONTINUOUS, INTRAVENOUS
     Route: 042
     Dates: start: 20040128
  2. ARB2323 LACTATED RINGERS INJECTION (HARTMANNS SOLUTION) [Suspect]
     Indication: HYPOTENSION
     Dosage: 500ML, CONTINUOUS, INTRAVENOUS
     Route: 042
     Dates: start: 20040128

REACTIONS (2)
  - PRURITUS [None]
  - RASH MACULO-PAPULAR [None]
